FAERS Safety Report 9239517 (Version 1)
Quarter: 2013Q2

REPORT INFORMATION
  Report Type: Spontaneous
  Country: US (occurrence: US)
  Receive Date: 20130418
  Receipt Date: 20130418
  Transmission Date: 20140414
  Serious: No
  Sender: FDA-Public Use
  Company Number: US-PFIZER INC-2013122235

PATIENT
  Age: 53 Year
  Sex: Female
  Weight: 69.84 kg

DRUGS (4)
  1. CHANTIX [Suspect]
     Indication: SMOKING CESSATION THERAPY
     Dosage: 0.5 MG, 2X/DAY
     Dates: start: 20130411
  2. INSULIN [Concomitant]
     Indication: DIABETES MELLITUS
     Dosage: 25 UNITS DAILY
  3. JANUVIA [Concomitant]
     Indication: DIABETES MELLITUS
     Dosage: 10 MG DAILY
  4. GLYBURIDE [Concomitant]
     Indication: DIABETES MELLITUS
     Dosage: 10 MG DAILY

REACTIONS (1)
  - Malaise [Unknown]
